FAERS Safety Report 9973928 (Version 2)
Quarter: 2014Q1

REPORT INFORMATION
  Report Type: Report from Study
  Country: US (occurrence: US)
  Receive Date: 20140306
  Receipt Date: 20140306
  Transmission Date: 20141002
  Serious: No
  Sender: FDA-Public Use
  Company Number: US-ABBVIE-12P-163-0984193-00

PATIENT
  Age: 56 Year
  Sex: Female
  Weight: 74.91 kg

DRUGS (17)
  1. HUMIRA [Suspect]
     Indication: BEHCET^S SYNDROME
     Dates: start: 201101
  2. COUMADIN [Suspect]
     Indication: THROMBOSIS
  3. COUMADIN [Suspect]
     Indication: CEREBROVASCULAR ACCIDENT
  4. CEPHALEXIN [Suspect]
     Indication: PRODUCT USED FOR UNKNOWN INDICATION
  5. ZOFRAN [Concomitant]
     Indication: NAUSEA
     Route: 060
  6. PREDNISONE [Concomitant]
     Indication: BEHCET^S SYNDROME
  7. PREDNISONE [Concomitant]
     Dates: start: 2013
  8. PROTONIX [Concomitant]
     Indication: GASTROOESOPHAGEAL REFLUX DISEASE
  9. ALBUTEROL [Concomitant]
     Indication: ASTHMA
  10. TOPROL [Concomitant]
     Indication: HYPERTENSION
     Dosage: 12.5 MG IN A. M. AND 25 MG IN PM
  11. OXYCODONE [Concomitant]
     Indication: OSTEOARTHRITIS
  12. OXYCODONE [Concomitant]
     Indication: FIBROMYALGIA
  13. LOTEMAX [Concomitant]
     Indication: EYE DISORDER
  14. VITAMIN D [Concomitant]
     Indication: SUPPLEMENTATION THERAPY
  15. ASA [Concomitant]
     Indication: CEREBROVASCULAR ACCIDENT PROPHYLAXIS
  16. B COMPLEX [Concomitant]
     Indication: VITAMIN SUPPLEMENTATION
  17. PROLIA [Concomitant]
     Indication: OSTEOPOROSIS
     Route: 058

REACTIONS (12)
  - Off label use [Not Recovered/Not Resolved]
  - Inappropriate schedule of drug administration [Unknown]
  - Oropharyngeal pain [Unknown]
  - Vasculitis [Not Recovered/Not Resolved]
  - Injection site haemorrhage [Unknown]
  - Injection site bruising [Unknown]
  - Inappropriate schedule of drug administration [Unknown]
  - Pyrexia [Unknown]
  - Contusion [Unknown]
  - Urticaria [Unknown]
  - Cystitis [Not Recovered/Not Resolved]
  - Cystitis [Not Recovered/Not Resolved]
